FAERS Safety Report 9796277 (Version 4)
Quarter: 2014Q1

REPORT INFORMATION
  Report Type: Report from Study
  Country: US (occurrence: US)
  Receive Date: 20140103
  Receipt Date: 20140131
  Transmission Date: 20141002
  Serious: Yes (Death, Hospitalization)
  Sender: FDA-Public Use
  Company Number: US-ACTELION-A-US2013-93207

PATIENT
  Age: 39 Year
  Sex: Female

DRUGS (10)
  1. VENTAVIS [Suspect]
     Indication: PULMONARY ARTERIAL HYPERTENSION
     Dosage: 9 TIMES A DAY
     Route: 055
     Dates: end: 20131230
  2. OPSUMIT [Suspect]
     Indication: PULMONARY ARTERIAL HYPERTENSION
     Dosage: UNK
     Route: 048
     Dates: start: 20131205
  3. COUMADIN [Concomitant]
     Dosage: 1 MG, QD
  4. MAGNESIUM [Concomitant]
     Dosage: 400 MG, BID
  5. IRON [Concomitant]
     Dosage: 65 MG, BID
  6. CARVEDILOL [Concomitant]
     Dosage: 3.12 MG, BID
  7. AMIODARONE [Concomitant]
     Dosage: 200 MG, QD
  8. TORSEMIDE [Concomitant]
     Dosage: 100 MG, QD, 11/2 TABLET
  9. CITALOPRAM [Concomitant]
     Dosage: 20 MG, QD
  10. ENALAPRIL [Concomitant]
     Dosage: 2.5 MG, QD

REACTIONS (7)
  - Pulmonary hypertension [Fatal]
  - Cardiac failure [Fatal]
  - Renal failure [Fatal]
  - Dehydration [Unknown]
  - Pulmonary arterial hypertension [Unknown]
  - Disease complication [Unknown]
  - Fluid retention [Unknown]
